FAERS Safety Report 4381206-7 (Version None)
Quarter: 2004Q2

REPORT INFORMATION
  Report Type: 
  Country: None (occurrence: None)
  Receive Date: 20040614
  Receipt Date: 20040608
  Transmission Date: 20050107
  Serious: Yes (Other)
  Sender: FDA-Public Use
  Company Number: ENT 2004-0110

PATIENT
  Age: 72 Year
  Sex: Male

DRUGS (4)
  1. COMTAN [Suspect]
     Indication: PARKINSON'S DISEASE
     Route: 048
     Dates: start: 20040304
  2. PERMAX [Concomitant]
  3. ELDEPRYL [Concomitant]
  4. PROLOPA [Concomitant]

REACTIONS (1)
  - CALCULUS URINARY [None]
